FAERS Safety Report 8163176-9 (Version None)
Quarter: 2012Q1

REPORT INFORMATION
  Report Type: 
  Country: None (occurrence: None)
  Receive Date: 20120224
  Receipt Date: 20110711
  Transmission Date: 20120608
  Serious: No
  Sender: FDA-Public Use
  Company Number: US-PFIZER INC-K201100802

PATIENT
  Age: 70 Year
  Sex: Female
  Weight: 63.039 kg

DRUGS (5)
  1. PREMARIN [Concomitant]
     Dosage: UNK
  2. TOPROL-XL [Concomitant]
     Indication: BLOOD CHOLESTEROL INCREASED
     Dosage: UNK
  3. ZETIA [Concomitant]
     Indication: BLOOD CHOLESTEROL INCREASED
     Dosage: UNK
  4. FLECTOR [Suspect]
     Indication: MUSCLE DISORDER
     Dosage: 1 PATCH, Q12H
     Route: 061
     Dates: start: 20110701
  5. PRAVACHOL [Concomitant]
     Indication: BLOOD CHOLESTEROL INCREASED
     Dosage: UNK

REACTIONS (1)
  - CONSTIPATION [None]
